FAERS Safety Report 6500326-1 (Version None)
Quarter: 2009Q4

REPORT INFORMATION
  Report Type: 
  Country: None (occurrence: None)
  Receive Date: 20091216
  Receipt Date: 20091208
  Transmission Date: 20100525
  Serious: Yes (Other)
  Sender: FDA-Public Use
  Company Number: US-ROCHE-673564

PATIENT
  Sex: Female
  Weight: 95.5 kg

DRUGS (2)
  1. BONIVA [Suspect]
     Indication: OSTEOPOROSIS
     Route: 048
     Dates: start: 20090901, end: 20091201
  2. NEXIUM [Concomitant]

REACTIONS (2)
  - ALOPECIA [None]
  - JAW DISORDER [None]
